FAERS Safety Report 7692500-6 (Version None)
Quarter: 2011Q3

REPORT INFORMATION
  Report Type: 
  Country: None (occurrence: None)
  Receive Date: 20110819
  Receipt Date: 20110815
  Transmission Date: 20111222
  Serious: Yes (Hospitalization, Disabling)
  Sender: FDA-Public Use
  Company Number: US-MERCK-0812USA02134

PATIENT
  Age: 49 Year
  Sex: Female
  Weight: 55 kg

DRUGS (6)
  1. FOSAMAX [Suspect]
     Route: 048
     Dates: start: 20010701, end: 20080107
  2. PREDNISONE [Concomitant]
     Indication: RHEUMATOID ARTHRITIS
     Route: 048
     Dates: start: 20000101
  3. AZMACORT [Concomitant]
     Indication: ASTHMA
     Route: 065
     Dates: start: 19990101, end: 20030828
  4. FOSAMAX [Suspect]
     Route: 048
  5. FOSAMAX [Suspect]
     Indication: OSTEOPOROSIS
     Route: 048
     Dates: start: 20000101, end: 20010701
  6. ARAVA [Concomitant]
     Indication: RHEUMATOID ARTHRITIS
     Route: 065
     Dates: start: 20000101

REACTIONS (29)
  - JAW FRACTURE [None]
  - VISUAL IMPAIRMENT [None]
  - INSOMNIA [None]
  - DYSPNOEA [None]
  - PATELLA FRACTURE [None]
  - OSTEONECROSIS OF JAW [None]
  - JOINT SWELLING [None]
  - ARTHROPATHY [None]
  - OVERDOSE [None]
  - ABSCESS [None]
  - ANXIETY [None]
  - INCREASED TENDENCY TO BRUISE [None]
  - DRUG ADMINISTRATION ERROR [None]
  - JAW CYST [None]
  - OSTEOARTHRITIS [None]
  - ORAL INFECTION [None]
  - HYPOAESTHESIA [None]
  - VISION BLURRED [None]
  - COUGH [None]
  - ADENOMA BENIGN [None]
  - TOOTH LOSS [None]
  - DRY EYE [None]
  - OSTEOMYELITIS [None]
  - PNEUMONIA [None]
  - TOOTH FRACTURE [None]
  - RHEUMATOID ARTHRITIS [None]
  - MUSCLE SPASMS [None]
  - TRISMUS [None]
  - DIZZINESS [None]
